FAERS Safety Report 5268676-7 (Version None)
Quarter: 2007Q1

REPORT INFORMATION
  Report Type: 
  Country: None (occurrence: None)
  Receive Date: 20070319
  Receipt Date: 20070306
  Transmission Date: 20070707
  Serious: Yes (Hospitalization)
  Sender: FDA-Public Use
  Company Number: US-JNJFOC-20070301267

PATIENT
  Age: 11 Year
  Sex: Female

DRUGS (3)
  1. INFLIXIMAB [Suspect]
     Indication: CROHN'S DISEASE
     Route: 042
  2. SOLU-MEDROL [Concomitant]
     Indication: CROHN'S DISEASE
     Route: 042
  3. ANTIOBIOTIC [Concomitant]
     Indication: CROHN'S DISEASE

REACTIONS (3)
  - CEREBRAL HAEMORRHAGE [None]
  - CEREBRAL INFARCTION [None]
  - INTRACRANIAL VENOUS SINUS THROMBOSIS [None]
